FAERS Safety Report 7683166-X (Version None)
Quarter: 2011Q3

REPORT INFORMATION
  Report Type: 
  Country: None (occurrence: None)
  Receive Date: 20110815
  Receipt Date: 20110809
  Transmission Date: 20111222
  Serious: No
  Sender: FDA-Public Use
  Company Number: FR-B.I. PHARMACEUTICALS,INC./RIDGEFIELD-2011-FF-00485FF

PATIENT
  Sex: Female
  Weight: 69 kg

DRUGS (4)
  1. PRADAXA [Suspect]
     Indication: HIP ARTHROPLASTY
     Dosage: 220 MG
     Route: 048
     Dates: start: 20110322, end: 20110404
  2. TRAMADOL HCL [Suspect]
     Indication: PAIN
     Dosage: 200 MG
     Route: 048
     Dates: start: 20110322, end: 20110404
  3. PRADAXA [Suspect]
     Indication: THROMBOSIS PROPHYLAXIS
  4. ACETAMINOPHEN [Suspect]
     Indication: PAIN
     Dosage: 3000 MG
     Route: 048
     Dates: start: 20110322, end: 20110404

REACTIONS (3)
  - ALANINE AMINOTRANSFERASE INCREASED [None]
  - ASPARTATE AMINOTRANSFERASE INCREASED [None]
  - GAMMA-GLUTAMYLTRANSFERASE INCREASED [None]
